FAERS Safety Report 13053184 (Version 5)
Quarter: 2017Q1

REPORT INFORMATION
  Report Type: Report from Study
  Country: CN (occurrence: CN)
  Receive Date: 20161222
  Receipt Date: 20170125
  Transmission Date: 20170428
  Serious: Yes (Hospitalization)
  Sender: FDA-Public Use
  Company Number: CN-ROCHE-1870242

PATIENT
  Age: 65 Year
  Sex: Male
  Weight: 79 kg

DRUGS (43)
  1. BETALOC CR [Concomitant]
     Active Substance: METOPROLOL SUCCINATE
     Indication: NODAL ARRHYTHMIA
     Route: 065
     Dates: start: 201610, end: 20161213
  2. GABAPENTIN. [Concomitant]
     Active Substance: GABAPENTIN
     Indication: PAIN
     Route: 065
     Dates: start: 20160930, end: 20161125
  3. GABAPENTIN. [Concomitant]
     Active Substance: GABAPENTIN
     Route: 065
     Dates: start: 20161128
  4. ESTAZOLAM. [Concomitant]
     Active Substance: ESTAZOLAM
     Route: 048
     Dates: start: 20161218, end: 20161229
  5. GEFARNATE [Concomitant]
     Active Substance: GEFARNATE
     Indication: DECREASED APPETITE
     Route: 065
     Dates: start: 20170112
  6. OXYCONTIN [Concomitant]
     Active Substance: OXYCODONE HYDROCHLORIDE
     Indication: PAIN
     Route: 065
     Dates: start: 20160930, end: 20161125
  7. PLATYCODON ROOT [Concomitant]
     Indication: PRODUCTIVE COUGH
     Dosage: COMPOUND
     Route: 065
     Dates: start: 20161128
  8. CREATINE PHOSPHATE SODIUM [Concomitant]
     Active Substance: CREATINE
     Route: 065
     Dates: start: 20161203, end: 20161207
  9. ESTAZOLAM. [Concomitant]
     Active Substance: ESTAZOLAM
     Indication: POOR QUALITY SLEEP
     Route: 048
     Dates: start: 20161128, end: 20161128
  10. LOXOPROFEN SODIUM [Concomitant]
     Active Substance: LOXOPROFEN SODIUM
     Indication: PAIN
     Route: 065
     Dates: start: 20160930, end: 20161125
  11. LOXOPROFEN SODIUM [Concomitant]
     Active Substance: LOXOPROFEN SODIUM
     Route: 065
     Dates: start: 20161128
  12. SYMBICORT [Concomitant]
     Active Substance: BUDESONIDE\FORMOTEROL FUMARATE DIHYDRATE
     Dosage: TURBULALER
     Route: 065
     Dates: start: 20161208
  13. DIPROPHYLLINE [Concomitant]
     Active Substance: DYPHYLLINE
     Route: 065
     Dates: start: 20161129, end: 20161130
  14. METOCLOPRAMIDE DIHYDROCHLORIDE [Concomitant]
     Indication: NAUSEA
     Route: 065
     Dates: start: 20161128, end: 20161128
  15. DEXAMETHASONE. [Concomitant]
     Active Substance: DEXAMETHASONE
     Route: 065
     Dates: start: 20170117
  16. ATEZOLIZUMAB [Suspect]
     Active Substance: ATEZOLIZUMAB
     Indication: NON-SMALL CELL LUNG CANCER
     Dosage: DATE OF MOST RECENT DOSE PRIOR TO THE EVENT ONSET: 15/NOV/2016
     Route: 042
     Dates: start: 20161115
  17. ROSUVASTATIN. [Concomitant]
     Active Substance: ROSUVASTATIN
     Indication: HYPERLIPIDAEMIA
     Route: 065
     Dates: start: 201509
  18. AMBROXOL HYDROCHLORIDE [Concomitant]
     Active Substance: AMBROXOL HYDROCHLORIDE
     Indication: DYSPNOEA
     Route: 065
     Dates: start: 20161122, end: 20161125
  19. MOXIFLOXACIN HYDROCHLORIDE. [Concomitant]
     Active Substance: MOXIFLOXACIN HYDROCHLORIDE
     Indication: DYSPNOEA
     Route: 065
     Dates: start: 20161123, end: 20161123
  20. AMINOPHYLLINE. [Concomitant]
     Active Substance: AMINOPHYLLINE
     Indication: DYSPNOEA
     Route: 065
     Dates: start: 20161128, end: 20161128
  21. AMIODARONE HYDROCHLORIDE. [Concomitant]
     Active Substance: AMIODARONE HYDROCHLORIDE
     Indication: ATRIAL FLUTTER
     Route: 065
     Dates: start: 20161202, end: 20161203
  22. LACTULOSE. [Concomitant]
     Active Substance: LACTULOSE
     Indication: CONSTIPATION
     Route: 065
     Dates: start: 20161204
  23. ENTERAL NUTRITION [Concomitant]
     Active Substance: DIETARY SUPPLEMENT
     Indication: DECREASED APPETITE
     Route: 065
     Dates: start: 20161130
  24. ZOPICLONE [Concomitant]
     Active Substance: ZOPICLONE
     Indication: INSOMNIA
     Route: 065
     Dates: start: 20161226
  25. THEOPHYLLINE, SUSTAINED RELEASE [Concomitant]
     Indication: DYSPNOEA
     Route: 065
     Dates: start: 20161122, end: 20161125
  26. SYMBICORT [Concomitant]
     Active Substance: BUDESONIDE\FORMOTEROL FUMARATE DIHYDRATE
     Indication: DYSPNOEA
     Dosage: TURBULALER
     Route: 065
     Dates: start: 20161122, end: 20161125
  27. BUDESONIDE. [Concomitant]
     Active Substance: BUDESONIDE
     Indication: DYSPNOEA
     Route: 065
     Dates: start: 20161123, end: 20161123
  28. DEXAMETHASONE. [Concomitant]
     Active Substance: DEXAMETHASONE
     Indication: DYSPNOEA
     Route: 065
     Dates: start: 20170109, end: 20170117
  29. MEGESTROL [Concomitant]
     Active Substance: MEGESTROL
     Indication: DECREASED APPETITE
     Route: 065
     Dates: start: 20170112
  30. AMBROXOL HYDROCHLORIDE [Concomitant]
     Active Substance: AMBROXOL HYDROCHLORIDE
     Indication: PRODUCTIVE COUGH
     Route: 065
     Dates: start: 20161020, end: 20161128
  31. AMBROXOL HYDROCHLORIDE [Concomitant]
     Active Substance: AMBROXOL HYDROCHLORIDE
     Route: 065
     Dates: start: 20161208
  32. BUDESONIDE. [Concomitant]
     Active Substance: BUDESONIDE
     Route: 055
     Dates: start: 20161128, end: 20161208
  33. DIPROPHYLLINE [Concomitant]
     Active Substance: DYPHYLLINE
     Indication: DYSPNOEA
     Route: 065
     Dates: start: 20161123, end: 20161123
  34. COENZYME Q-10 [Concomitant]
     Route: 065
     Dates: start: 20161203
  35. POTASSIUM CHLORIDE SLOW RELEASE [Concomitant]
     Indication: BLOOD POTASSIUM DECREASED
     Dosage: SUSTAINED RELEASE
     Route: 065
     Dates: start: 20161129
  36. OXYCONTIN [Concomitant]
     Active Substance: OXYCODONE HYDROCHLORIDE
     Route: 065
     Dates: start: 20161128
  37. IPRATROPIUM BROMIDE. [Concomitant]
     Active Substance: IPRATROPIUM BROMIDE
     Route: 065
     Dates: start: 20161128, end: 20161208
  38. GUAIFENESIN/CODEINE [Concomitant]
     Active Substance: CODEINE PHOSPHATE\GUAIFENESIN
     Indication: PRODUCTIVE COUGH
     Route: 065
     Dates: start: 20161128
  39. AMBROXOL HYDROCHLORIDE [Concomitant]
     Active Substance: AMBROXOL HYDROCHLORIDE
     Route: 065
     Dates: start: 20161128, end: 20161208
  40. THEOPHYLLINE, SUSTAINED RELEASE [Concomitant]
     Route: 065
     Dates: start: 20161201
  41. IPRATROPIUM BROMIDE. [Concomitant]
     Active Substance: IPRATROPIUM BROMIDE
     Indication: DYSPNOEA
     Dosage: COMPOUND
     Route: 065
     Dates: start: 20161123, end: 20161123
  42. POTASSIUM MAGNESIUM ASPARAGINATE [Concomitant]
     Indication: BLOOD POTASSIUM DECREASED
     Route: 065
     Dates: start: 20161202, end: 20161207
  43. ASPIRIN ENTERIC COATED [Concomitant]
     Active Substance: ASPIRIN
     Indication: DECREASED APPETITE
     Route: 065
     Dates: start: 20170112

REACTIONS (1)
  - Cardiac failure [Not Recovered/Not Resolved]

NARRATIVE: CASE EVENT DATE: 20161213
